FAERS Safety Report 7201392-0 (Version None)
Quarter: 2010Q4

REPORT INFORMATION
  Report Type: 
  Country: None (occurrence: None)
  Receive Date: 20101215
  Receipt Date: 20101206
  Transmission Date: 20110411
  Serious: No
  Sender: FDA-Public Use
  Company Number: 022007

PATIENT
  Sex: Female

DRUGS (5)
  1. VIMPAT [Suspect]
     Indication: CONVULSION
     Dosage: (100 MG BID ORAL)
     Route: 048
     Dates: start: 20090202
  2. KEPPRA [Concomitant]
  3. MYSOLINE [Concomitant]
  4. LEVOTHYROXINE [Concomitant]
  5. CALCIUM CARBONATE [Concomitant]

REACTIONS (7)
  - ATRIAL FIBRILLATION [None]
  - CYANOSIS [None]
  - PAIN [None]
  - PALLOR [None]
  - PERIPHERAL COLDNESS [None]
  - SENSORY DISTURBANCE [None]
  - SUPERFICIAL VEIN PROMINENCE [None]
